FAERS Safety Report 18373402 (Version 1)
Quarter: 2020Q4

REPORT INFORMATION
  Report Type: Report from Study
  Country: None (occurrence: CO)
  Receive Date: 20201012
  Receipt Date: 20201012
  Transmission Date: 20210114
  Serious: Yes (Other)
  Sender: FDA-Public Use
  Company Number: CO-ABBVIE-20K-036-3558704-00

PATIENT
  Age: 64 Year
  Sex: Female
  Weight: 55 kg

DRUGS (2)
  1. HUMIRA [Suspect]
     Active Substance: ADALIMUMAB
     Indication: PSORIASIS
     Route: 058
     Dates: end: 20200605
  2. HUMIRA [Suspect]
     Active Substance: ADALIMUMAB
     Indication: PSORIASIS
     Route: 058
     Dates: start: 20090713

REACTIONS (8)
  - Anaemia [Unknown]
  - Diarrhoea [Not Recovered/Not Resolved]
  - Helicobacter infection [Unknown]
  - Gastric ulcer [Unknown]
  - Weight decreased [Not Recovered/Not Resolved]
  - Chronic gastritis [Unknown]
  - Haemoglobin abnormal [Unknown]
  - Abdominal pain [Not Recovered/Not Resolved]

NARRATIVE: CASE EVENT DATE: 201711
